FAERS Safety Report 8207784-5 (Version None)
Quarter: 2012Q1

REPORT INFORMATION
  Report Type: 
  Country: None (occurrence: None)
  Receive Date: 20120313
  Receipt Date: 20120313
  Transmission Date: 20120608
  Serious: Yes (Other)
  Sender: FDA-Public Use
  Company Number: None

PATIENT
  Sex: Male
  Weight: 73.4827 kg

DRUGS (2)
  1. ZESTRIL [Suspect]
     Indication: HYPERTENSION
     Dosage: 90 1 QAM P.O
     Route: 048
     Dates: start: 20101229, end: 20110908
  2. TOPROL XL 50 50MG [Concomitant]
     Indication: HYPERTENSION
     Dosage: 180 1 BID P.O.
     Route: 048
     Dates: start: 20101229, end: 20110908

REACTIONS (1)
  - BLOOD PRESSURE INADEQUATELY CONTROLLED [None]
